FAERS Safety Report 5447440-X (Version None)
Quarter: 2007Q3

REPORT INFORMATION
  Report Type: 
  Country: None (occurrence: None)
  Receive Date: 20070905
  Receipt Date: 20070905
  Transmission Date: 20080115
  Serious: Yes (Hospitalization)
  Sender: FDA-Public Use
  Company Number: None

PATIENT
  Age: 42 Year
  Sex: Male
  Weight: 76 kg

DRUGS (4)
  1. LISINOPRIL [Suspect]
     Indication: CARDIAC FAILURE CONGESTIVE
     Dosage: 15 MG DAILY PO
     Route: 048
     Dates: start: 20060101, end: 20070124
  2. LISINOPRIL [Suspect]
     Indication: HYPERTENSION
     Dosage: 15 MG DAILY PO
     Route: 048
     Dates: start: 20060101, end: 20070124
  3. FUROSEMIDE UNKNOWN UNKNOWN [Suspect]
     Indication: CARDIAC FAILURE CONGESTIVE
     Dosage: 80MG TWICE DAILY PO
     Route: 048
     Dates: start: 20060101, end: 20070204
  4. FUROSEMIDE UNKNOWN UNKNOWN [Suspect]
     Indication: HYPERTENSION
     Dosage: 80MG TWICE DAILY PO
     Route: 048
     Dates: start: 20060101, end: 20070204

REACTIONS (5)
  - BLOOD PRESSURE DECREASED [None]
  - BLOOD SODIUM DECREASED [None]
  - HAEMODYNAMIC INSTABILITY [None]
  - LEUKOCYTOCLASTIC VASCULITIS [None]
  - WHITE BLOOD CELL COUNT INCREASED [None]
